FAERS Safety Report 14122089 (Version 1)
Quarter: 2017Q4

REPORT INFORMATION
  Report Type: Report from Study
  Country: CA (occurrence: CA)
  Receive Date: 20171024
  Receipt Date: 20171024
  Transmission Date: 20180321
  Serious: Yes (Hospitalization, Other)
  Sender: FDA-Public Use
  Company Number: CA-JNJFOC-20171015840

PATIENT
  Sex: Female

DRUGS (4)
  1. REMICADE [Suspect]
     Active Substance: INFLIXIMAB
     Indication: CROHN^S DISEASE
     Route: 042
     Dates: end: 20170410
  2. REMICADE [Suspect]
     Active Substance: INFLIXIMAB
     Indication: ANORECTAL DISORDER
     Route: 042
     Dates: end: 20170410
  3. REMICADE [Suspect]
     Active Substance: INFLIXIMAB
     Indication: ANORECTAL DISORDER
     Route: 042
     Dates: start: 20170926
  4. REMICADE [Suspect]
     Active Substance: INFLIXIMAB
     Indication: CROHN^S DISEASE
     Route: 042
     Dates: start: 20170926

REACTIONS (2)
  - Intestinal stenosis [Unknown]
  - Enterostomy [Unknown]
